FAERS Safety Report 18529902 (Version 2)
Quarter: 2020Q4

REPORT INFORMATION
  Report Type: Spontaneous
  Country: US (occurrence: US)
  Receive Date: 20201121
  Receipt Date: 20201125
  Transmission Date: 20210114
  Serious: Yes (Hospitalization, Other)
  Sender: FDA-Public Use
  Company Number: US-UNITED THERAPEUTICS-UNT-2020-017957

PATIENT
  Age: 73 Year
  Sex: Male
  Weight: 67.85 kg

DRUGS (4)
  1. REMODULIN [Suspect]
     Active Substance: TREPROSTINIL
     Dosage: 0.055 ?G/KG, CONTINUING
     Route: 058
  2. ADCIRCA [Concomitant]
     Active Substance: TADALAFIL
     Indication: PULMONARY ARTERIAL HYPERTENSION
     Dosage: UNK
     Route: 065
  3. REMODULIN [Suspect]
     Active Substance: TREPROSTINIL
     Indication: PULMONARY ARTERIAL HYPERTENSION
     Dosage: UNK, CONTINUING
     Route: 058
     Dates: start: 20191024
  4. ELIQUIS [Concomitant]
     Active Substance: APIXABAN
     Indication: PRODUCT USED FOR UNKNOWN INDICATION
     Dosage: UNK
     Route: 065

REACTIONS (13)
  - Blood pressure decreased [Unknown]
  - Dyspnoea [Recovering/Resolving]
  - Cardiac disorder [Recovering/Resolving]
  - Infusion site haemorrhage [Unknown]
  - Infusion site erythema [Not Recovered/Not Resolved]
  - Discoloured vomit [Unknown]
  - Pneumonia [Unknown]
  - Infusion site pruritus [Not Recovered/Not Resolved]
  - Gastrointestinal haemorrhage [Unknown]
  - Sepsis [Unknown]
  - Oxygen saturation decreased [Unknown]
  - Feeling abnormal [Recovering/Resolving]
  - Heart rate decreased [Unknown]

NARRATIVE: CASE EVENT DATE: 202011
